FAERS Safety Report 10373847 (Version 1)
Quarter: 2014Q1

REPORT INFORMATION
  Report Type: Spontaneous
  Country: US (occurrence: None)
  Receive Date: 20140306
  Receipt Date: 20140306
  Transmission Date: 20141002
  Serious: Yes (Other)
  Sender: FDA-Public Use
  Company Number: 163-21880-13105082

PATIENT
  Age: 81 Year
  Sex: Male

DRUGS (6)
  1. REVLIMID [Suspect]
     Indication: PLASMA CELL MYELOMA
     Route: 048
     Dates: start: 201111
  2. COUMADIN (WARFARIN SODIUM) [Concomitant]
  3. LIPITOR (ATORVASTATIN) [Concomitant]
  4. ATENOLOL (ATENOLOL) [Concomitant]
  5. LISINOPRIL (LISINOPRIL) [Concomitant]
  6. ASPIRIN (ACETYLSALICYLIC ACID) [Concomitant]

REACTIONS (1)
  - Thrombosis [None]
